FAERS Safety Report 12538213 (Version 1)
Quarter: 2016Q3

REPORT INFORMATION
  Report Type: Spontaneous
  Country: FR (occurrence: FR)
  Receive Date: 20160707
  Receipt Date: 20160707
  Transmission Date: 20161109
  Serious: Yes (Hospitalization)
  Sender: FDA-Public Use
  Company Number: ALCN2016FR004577

PATIENT
  Age: 8 Month
  Sex: Male
  Weight: 11 kg

DRUGS (1)
  1. ATROPINE SULFATE. [Suspect]
     Active Substance: ATROPINE SULFATE
     Indication: MYDRIASIS
     Dosage: 1 GTT, BID
     Route: 047
     Dates: start: 20160615, end: 20160620

REACTIONS (6)
  - Staring [Recovered/Resolved]
  - Product use issue [Unknown]
  - Hypertonia [Recovered/Resolved]
  - Erythema [Recovered/Resolved]
  - Hypertension [Unknown]
  - Bradycardia [Unknown]

NARRATIVE: CASE EVENT DATE: 20160615
